FAERS Safety Report 9314304 (Version 1)
Quarter: 2013Q2

REPORT INFORMATION
  Report Type: Spontaneous
  Country: US (occurrence: None)
  Receive Date: 20130524
  Receipt Date: 20130524
  Transmission Date: 20140414
  Serious: Yes (Life-Threatening, Hospitalization, Disabling, Other)
  Sender: FDA-Public Use
  Company Number: None

PATIENT
  Age: 82 Year
  Sex: Female

DRUGS (2)
  1. WARFARIN SODIUM [Suspect]
     Dosage: ONE TABLET
     Route: 048
  2. WARFARIN SODIUM [Suspect]
     Dosage: ONE TABLET
     Route: 048

REACTIONS (5)
  - Haemoptysis [None]
  - International normalised ratio increased [None]
  - Drug dispensing error [None]
  - Coagulation time prolonged [None]
  - Overdose [None]
